FAERS Safety Report 13472859 (Version 1)
Quarter: 2017Q2

REPORT INFORMATION
  Report Type: Spontaneous
  Country: US (occurrence: US)
  Receive Date: 20170424
  Receipt Date: 20170424
  Transmission Date: 20170830
  Serious: No
  Sender: FDA-Public Use
  Company Number: US-CIPLA LTD.-2016US10346

PATIENT

DRUGS (7)
  1. MEPROBAMATE. [Suspect]
     Active Substance: MEPROBAMATE
     Indication: AFFECTIVE DISORDER
     Dosage: 400 MG, BID, AS NEEDED
     Route: 048
  2. METFORMIN [Concomitant]
     Active Substance: METFORMIN HYDROCHLORIDE
     Dosage: 500 MG, UNK
     Route: 065
  3. SPIRIVA/NI [Concomitant]
     Dosage: UNK
     Route: 065
  4. VENTOLIN/NI [Concomitant]
     Dosage: UNK
     Route: 065
  5. SYMBICORT/NI [Concomitant]
     Dosage: UNK
     Route: 065
  6. ATORVASTATIN/NI [Concomitant]
     Dosage: UNK
     Route: 065
  7. MELOXICAM/NI [Concomitant]
     Dosage: UNK
     Route: 065

REACTIONS (1)
  - Product friable [Unknown]
